APPROVED DRUG PRODUCT: PLASMA-LYTE 56 IN PLASTIC CONTAINER
Active Ingredient: MAGNESIUM ACETATE TETRAHYDRATE; POTASSIUM ACETATE; SODIUM CHLORIDE
Strength: 32MG/100ML;128MG/100ML;234MG/100ML
Dosage Form/Route: INJECTABLE;INJECTION
Application: N019047 | Product #001
Applicant: BAXTER HEALTHCARE CORP
Approved: Jun 15, 1984 | RLD: No | RS: No | Type: DISCN